FAERS Safety Report 18350501 (Version 3)
Quarter: 2020Q4

REPORT INFORMATION
  Report Type: Report from Study
  Country: US (occurrence: US)
  Receive Date: 20201006
  Receipt Date: 20201110
  Transmission Date: 20210114
  Serious: Yes (Hospitalization, Other)
  Sender: FDA-Public Use
  Company Number: US-JNJFOC-A-US2019-190691

PATIENT
  Age: 53 Year
  Sex: Female
  Weight: 103.51 kg

DRUGS (9)
  1. UPTRAVI [Suspect]
     Active Substance: SELEXIPAG
     Dosage: 400 MCG, BID
     Route: 048
     Dates: start: 20200409
  2. OPSUMIT [Suspect]
     Active Substance: MACITENTAN
     Dosage: 10 MG, QD
     Route: 048
  3. TYVASO [Suspect]
     Active Substance: TREPROSTINIL
     Dosage: 16 BREATHS 4 TIMES PER DAY
  4. TADALAFIL. [Concomitant]
     Active Substance: TADALAFIL
  5. OPSUMIT [Suspect]
     Active Substance: MACITENTAN
     Indication: PULMONARY ARTERIAL HYPERTENSION
     Dosage: 10 MG, QD
     Route: 048
  6. UPTRAVI [Suspect]
     Active Substance: SELEXIPAG
     Dosage: 400 MCG, BID
     Route: 048
  7. TYVASO [Suspect]
     Active Substance: TREPROSTINIL
     Dosage: 7 PUFF
  8. UPTRAVI [Suspect]
     Active Substance: SELEXIPAG
     Indication: PULMONARY ARTERIAL HYPERTENSION
     Dosage: 200 MCG, BID
     Route: 048
     Dates: end: 20200507
  9. TYVASO [Suspect]
     Active Substance: TREPROSTINIL
     Indication: PRODUCT USED FOR UNKNOWN INDICATION
     Dosage: 8 PUFF

REACTIONS (36)
  - Pulmonary hypertension [Not Recovered/Not Resolved]
  - Anxiety [Unknown]
  - Arthralgia [Unknown]
  - Pain [Unknown]
  - Unevaluable event [Unknown]
  - Pain in jaw [Unknown]
  - Drug ineffective [Unknown]
  - Illness [Recovering/Resolving]
  - Bronchitis [Not Recovered/Not Resolved]
  - Depression [Unknown]
  - Headache [Unknown]
  - Pain in extremity [Unknown]
  - Motor dysfunction [Unknown]
  - Nausea [Unknown]
  - Loss of consciousness [Unknown]
  - Hypotension [Unknown]
  - Dyspnoea exertional [Not Recovered/Not Resolved]
  - Productive cough [Not Recovered/Not Resolved]
  - Migraine [Unknown]
  - Abdominal discomfort [Unknown]
  - Diarrhoea [Unknown]
  - Chest discomfort [Unknown]
  - Cough [Unknown]
  - Fatigue [Recovering/Resolving]
  - Hospitalisation [Unknown]
  - Presyncope [Unknown]
  - Hyperventilation [Unknown]
  - Dehydration [Unknown]
  - Sputum discoloured [Not Recovered/Not Resolved]
  - Oxygen saturation decreased [Unknown]
  - Syncope [Unknown]
  - Gastroenteritis viral [Unknown]
  - Feeling abnormal [Unknown]
  - Pollakiuria [Unknown]
  - Adverse drug reaction [Unknown]
  - Drug intolerance [Unknown]

NARRATIVE: CASE EVENT DATE: 20190505
